FAERS Safety Report 4618652-X (Version None)
Quarter: 2005Q2

REPORT INFORMATION
  Report Type: 
  Country: None (occurrence: None)
  Receive Date: 20050311
  Receipt Date: 20041124
  Transmission Date: 20051028
  Serious: No
  Sender: FDA-Public Use
  Company Number: 2004-BP-08950BP

PATIENT
  Age: 61 Year
  Sex: Female

DRUGS (7)
  1. SPIRIVA [Suspect]
     Indication: CHRONIC OBSTRUCTIVE PULMONARY DISEASE
     Dosage: 18 MCG (18 MCG), IH;  18 MCG (18 MCG), IH
     Route: 055
     Dates: start: 20040101, end: 20040927
  2. SPIRIVA [Suspect]
     Indication: CHRONIC OBSTRUCTIVE PULMONARY DISEASE
     Dosage: 18 MCG (18 MCG), IH;  18 MCG (18 MCG), IH
     Route: 055
     Dates: start: 20041001
  3. NEXIUM [Concomitant]
  4. DIFLUCAN [Concomitant]
  5. FORADIL AEROLIZER (FORMOTEROL FUMARATE) [Concomitant]
  6. IPRATROPIUM BROMIDE [Concomitant]
  7. METHADONE (METHADONE) [Concomitant]

REACTIONS (1)
  - DRUG INEFFECTIVE [None]
